FAERS Safety Report 4386638-9 (Version None)
Quarter: 2004Q2

REPORT INFORMATION
  Report Type: 
  Country: None (occurrence: None)
  Receive Date: 20040623
  Receipt Date: 20040608
  Transmission Date: 20050107
  Serious: Yes (Hospitalization)
  Sender: FDA-Public Use
  Company Number: USA040669661

PATIENT
  Sex: Male

DRUGS (4)
  1. ZYPREXA [Suspect]
     Indication: SCHIZOPHRENIA
     Dosage: 12.5 MG DAY
  2. ARTANE [Concomitant]
  3. TRAZODONE HCL [Concomitant]
  4. TEGRETOL [Concomitant]

REACTIONS (1)
  - OESOPHAGEAL CARCINOMA [None]
